FAERS Safety Report 20964844 (Version 1)
Quarter: 2022Q2

REPORT INFORMATION
  Report Type: Spontaneous
  Country: US (occurrence: US)
  Receive Date: 20220616
  Receipt Date: 20220616
  Transmission Date: 20220721
  Serious: Yes (Other)
  Sender: FDA-Public Use
  Company Number: US-BAUSCH-BL-2022-015100

PATIENT
  Sex: Female

DRUGS (2)
  1. LUMIFY [Suspect]
     Active Substance: BRIMONIDINE TARTRATE
     Indication: Product used for unknown indication
     Route: 065
  2. LUMIFY [Suspect]
     Active Substance: BRIMONIDINE TARTRATE

REACTIONS (5)
  - Instillation site haemorrhage [Unknown]
  - Instillation site pain [Not Recovered/Not Resolved]
  - Vision blurred [Not Recovered/Not Resolved]
  - Instillation site discharge [Not Recovered/Not Resolved]
  - Patient dissatisfaction with treatment [Unknown]
